FAERS Safety Report 4342277-7 (Version None)
Quarter: 2004Q2

REPORT INFORMATION
  Report Type: 
  Country: None (occurrence: None)
  Receive Date: 20040415
  Receipt Date: 20040407
  Transmission Date: 20050107
  Serious: Yes (Life-Threatening)
  Sender: FDA-Public Use
  Company Number: 2004UW07010

PATIENT
  Sex: Male

DRUGS (4)
  1. SEROQUEL [Suspect]
     Dosage: 25 MG BID PO
     Route: 048
  2. DIGOXIN [Concomitant]
  3. CALCIUM CHANNEL BLOCKER [Concomitant]
  4. BETA BLOCKER [Concomitant]

REACTIONS (3)
  - ATRIOVENTRICULAR BLOCK COMPLETE [None]
  - CARDIO-RESPIRATORY ARREST [None]
  - CARDIOACTIVE DRUG LEVEL DECREASED [None]
